FAERS Safety Report 19710675 (Version 1)
Quarter: 2021Q3

REPORT INFORMATION
  Report Type: Spontaneous
  Country: GB (occurrence: GB)
  Receive Date: 20210816
  Receipt Date: 20210816
  Transmission Date: 20211014
  Serious: Yes (Other)
  Sender: FDA-Public Use
  Company Number: GB-MYLANLABS-2021M1050100

PATIENT
  Age: 72 Year
  Sex: Male
  Weight: 102 kg

DRUGS (12)
  1. DOXYCYCLINE. [Concomitant]
     Active Substance: DOXYCYCLINE
     Dosage: 2 DOSAGE FORM, QD (TWO NOW THEN ONE DAILY)
     Dates: start: 20210119
  2. OCTASA [Concomitant]
     Active Substance: MESALAMINE
     Dosage: 4 DOSAGE FORM, QD, IN THE MORNING
     Dates: start: 20210119
  3. PREDNISOLONE. [Concomitant]
     Active Substance: PREDNISOLONE
     Dosage: 30 MILLIGRAM, QD, EVERY MORNING
     Dates: start: 20210119
  4. VIAZEM XL [Concomitant]
     Active Substance: DILTIAZEM HYDROCHLORIDE
     Dosage: 1 DOSAGE FORM, QD
     Dates: start: 20210119
  5. AMIODARONE [Suspect]
     Active Substance: AMIODARONE
     Indication: PRODUCT USED FOR UNKNOWN INDICATION
     Dosage: 200 MILLIGRAM, QD
     Route: 048
     Dates: start: 20210119
  6. QUININE [Concomitant]
     Active Substance: QUININE
     Dosage: 1 DOSAGE FORM, QD, AT NIGHT
     Dates: start: 20210119
  7. SERETIDE [Concomitant]
     Active Substance: FLUTICASONE PROPIONATE\SALMETEROL XINAFOATE
     Dosage: 1 DOSAGE FORM, BID
     Route: 055
     Dates: start: 20210119
  8. COCODAMOL [Concomitant]
     Active Substance: ACETAMINOPHEN\CODEINE PHOSPHATE
     Dosage: QD, TAKE 1 OR 2 4 TIMES/DAY
     Dates: start: 20210119
  9. SALBUTAMOL [Concomitant]
     Active Substance: ALBUTEROL
     Indication: COUGH
     Dosage: 2 DOSAGE FORM, Q4H, PUFFS
     Dates: start: 20210119
  10. SPIRIVA [Concomitant]
     Active Substance: TIOTROPIUM BROMIDE MONOHYDRATE
     Dosage: 1 DOSAGE FORM, QD
     Route: 055
     Dates: start: 20210119
  11. DOXYCYCLINE. [Concomitant]
     Active Substance: DOXYCYCLINE
     Dosage: 1 DOSAGE FORM, QD, TWO NOW THEN ONE DAILY
     Dates: start: 20210120
  12. LEVOTHYROXINE. [Concomitant]
     Active Substance: LEVOTHYROXINE
     Dosage: 1 DOSAGE FORM, QD, EACH MORNING
     Dates: start: 20210119

REACTIONS (1)
  - Corneal deposits [Unknown]
